FAERS Safety Report 6967833-9 (Version None)
Quarter: 2010Q3

REPORT INFORMATION
  Report Type: 
  Country: None (occurrence: None)
  Receive Date: 20100907
  Receipt Date: 20100128
  Transmission Date: 20110219
  Serious: No
  Sender: FDA-Public Use
  Company Number: A0841878A

PATIENT
  Age: 64 Year
  Sex: Female

DRUGS (1)
  1. ROPINIROLE [Suspect]
     Indication: RESTLESS LEGS SYNDROME
     Dosage: 2MG TWICE PER DAY
     Route: 048
     Dates: start: 20080501, end: 20080501

REACTIONS (4)
  - DRUG INEFFECTIVE [None]
  - DYSKINESIA [None]
  - GAIT DISTURBANCE [None]
  - PAIN IN EXTREMITY [None]
